FAERS Safety Report 8229038-3 (Version None)
Quarter: 2012Q1

REPORT INFORMATION
  Report Type: 
  Country: None (occurrence: None)
  Receive Date: 20120322
  Receipt Date: 20120312
  Transmission Date: 20120608
  Serious: Yes (Hospitalization, Other)
  Sender: FDA-Public Use
  Company Number: US-MERCK-1107USA01808

PATIENT
  Age: 66 Year
  Sex: Female
  Weight: 78 kg

DRUGS (4)
  1. MULTI-VITAMINS [Concomitant]
     Route: 065
     Dates: start: 19710101
  2. ALENDRONATE SODIUM [Suspect]
     Indication: OSTEOPOROSIS
     Route: 048
     Dates: start: 20080827
  3. FOSAMAX [Suspect]
     Route: 048
     Dates: start: 20080610
  4. FOSAMAX [Suspect]
     Indication: OSTEOPOROSIS
     Route: 048
     Dates: start: 20020101, end: 20100201

REACTIONS (42)
  - DEEP VEIN THROMBOSIS [None]
  - PLEURAL EFFUSION [None]
  - THROMBOCYTOPENIA [None]
  - SKIN CANCER [None]
  - POLYP COLORECTAL [None]
  - RENAL FAILURE ACUTE [None]
  - PNEUMONIA [None]
  - VARICOSE VEIN [None]
  - OEDEMA PERIPHERAL [None]
  - ORAL DISORDER [None]
  - GOUT [None]
  - DEVICE FAILURE [None]
  - URINARY RETENTION [None]
  - OESOPHAGEAL PERFORATION [None]
  - DEHYDRATION [None]
  - TOOTH DISORDER [None]
  - EAR NEOPLASM [None]
  - INTERVERTEBRAL DISC DEGENERATION [None]
  - HYPERLIPIDAEMIA [None]
  - CONSTIPATION [None]
  - RECTOCELE [None]
  - DRUG ERUPTION [None]
  - FALL [None]
  - FEMUR FRACTURE [None]
  - MEDIASTINITIS [None]
  - EMPYEMA [None]
  - HYPOACUSIS [None]
  - DYSURIA [None]
  - COLITIS [None]
  - CYSTOCELE [None]
  - SEPSIS [None]
  - DRUG HYPERSENSITIVITY [None]
  - INTERMITTENT CLAUDICATION [None]
  - PAIN IN EXTREMITY [None]
  - BASAL CELL CARCINOMA [None]
  - FRACTURE DELAYED UNION [None]
  - RESPIRATORY FAILURE [None]
  - FRACTURE NONUNION [None]
  - ERYTHEMA [None]
  - LACERATION [None]
  - HYPOTHYROIDISM [None]
  - DEPRESSION [None]
